FAERS Safety Report 4800718-2 (Version None)
Quarter: 2005Q4

REPORT INFORMATION
  Report Type: 
  Country: None (occurrence: None)
  Receive Date: 20051011
  Receipt Date: 20050927
  Transmission Date: 20060501
  Serious: Yes (Other)
  Sender: FDA-Public Use
  Company Number: HQWYE995319MAR04

PATIENT
  Age: 20 Month
  Sex: Male

DRUGS (2)
  1. REFACTO [Suspect]
     Indication: FACTOR VIII DEFICIENCY
     Dosage: SEE IMAGE
     Dates: start: 20030916
  2. REFACTO [Suspect]

REACTIONS (4)
  - ACCIDENT [None]
  - ANTI FACTOR VIII ANTIBODY POSITIVE [None]
  - BITE [None]
  - HAEMORRHAGE [None]
